FAERS Safety Report 22196767 (Version 3)
Quarter: 2023Q2

REPORT INFORMATION
  Report Type: Report from Study
  Country: CN (occurrence: None)
  Receive Date: 20230411
  Receipt Date: 20230501
  Transmission Date: 20230722
  Serious: Yes (Life-Threatening, Hospitalization)
  Sender: FDA-Public Use
  Company Number: CN-ROCHE-3285594

PATIENT
  Age: 51 Year
  Sex: Male
  Weight: 75 kg

DRUGS (41)
  1. RITUXIMAB [Suspect]
     Active Substance: RITUXIMAB
     Indication: Diffuse large B-cell lymphoma
     Dosage: LATEST DOSE ADMINISTERED ON 27/FEB/2023?DATE OF LAST DOSE PRIOR TO EVENT: 29/DEC/2022
     Route: 042
     Dates: start: 20221229, end: 20230131
  2. RITUXIMAB [Suspect]
     Active Substance: RITUXIMAB
     Route: 042
     Dates: start: 20230112
  3. RITUXIMAB [Suspect]
     Active Substance: RITUXIMAB
     Route: 042
     Dates: start: 20230130
  4. RITUXIMAB [Suspect]
     Active Substance: RITUXIMAB
     Route: 042
     Dates: start: 20230227, end: 20230228
  5. GEMCITABINE [Suspect]
     Active Substance: GEMCITABINE
     Indication: Diffuse large B-cell lymphoma
     Dosage: LATEST DOSE ADMINISTERED ON 28/FEB/2023
     Route: 042
     Dates: start: 20221230, end: 20230131
  6. GEMCITABINE [Suspect]
     Active Substance: GEMCITABINE
     Route: 042
     Dates: start: 20230113
  7. GEMCITABINE [Suspect]
     Active Substance: GEMCITABINE
     Route: 042
     Dates: start: 20230131
  8. GEMCITABINE [Suspect]
     Active Substance: GEMCITABINE
     Route: 042
     Dates: start: 20230228, end: 20230228
  9. OXALIPLATIN [Suspect]
     Active Substance: OXALIPLATIN
     Indication: Diffuse large B-cell lymphoma
     Dosage: LATEST DOSE ADMINISTERED ON 13/JAN/2023, AT 1000 MG/M2.
     Route: 042
     Dates: start: 20221230, end: 20230131
  10. OXALIPLATIN [Suspect]
     Active Substance: OXALIPLATIN
     Dosage: LATEST DOSE ADMINISTERED ON 28/FEB/2023
     Route: 042
     Dates: start: 20230113
  11. OXALIPLATIN [Suspect]
     Active Substance: OXALIPLATIN
     Route: 042
     Dates: start: 20230131
  12. OXALIPLATIN [Suspect]
     Active Substance: OXALIPLATIN
     Route: 042
     Dates: start: 20230228, end: 20230228
  13. CALAMINE [Concomitant]
     Active Substance: CALAMINE\FERRIC OXIDE RED\ZINC OXIDE
     Dates: start: 20230103, end: 202302
  14. CHLORAMPHENICOL [Concomitant]
     Active Substance: CHLORAMPHENICOL
     Dates: start: 20230109
  15. CHLORHEXIDINE [Concomitant]
     Active Substance: CHLORHEXIDINE
     Dates: start: 20230103, end: 20230125
  16. DEXAMETHASONE SODIUM PHOSPHATE [Concomitant]
     Active Substance: DEXAMETHASONE SODIUM PHOSPHATE
     Dates: start: 20221229
  17. EBASTINE [Concomitant]
     Active Substance: EBASTINE
     Dates: start: 20230102
  18. ENTECAVIR [Concomitant]
     Active Substance: ENTECAVIR
     Dates: start: 20221205
  19. FLURBIPROFEN [Concomitant]
     Active Substance: FLURBIPROFEN
  20. HUMAN GRANULOCYTE COLONY STIMULATING FACTOR INJECTION (UNK INGREDIENTS [Concomitant]
     Dates: start: 20230104, end: 20230306
  21. ISONIAZID [Concomitant]
     Active Substance: ISONIAZID
     Dates: start: 20221226
  22. LORATADINE [Concomitant]
     Active Substance: LORATADINE
     Dates: start: 20230103, end: 20230127
  23. METHYLPREDNISOLONE SODIUM SUCCINATE [Concomitant]
     Active Substance: METHYLPREDNISOLONE SODIUM SUCCINATE
     Dates: start: 20230111, end: 20230219
  24. MOMETASONE FUROATE [Concomitant]
     Active Substance: MOMETASONE FUROATE
     Dates: start: 20230102, end: 20230125
  25. PALONOSETRON HYDROCHLORIDE [Concomitant]
     Active Substance: PALONOSETRON HYDROCHLORIDE
     Dates: start: 20221229, end: 20230228
  26. POTASSIUM CHLORIDE [Concomitant]
     Active Substance: POTASSIUM CHLORIDE
     Dates: start: 20221230, end: 20230307
  27. RANITIDINE [Concomitant]
     Active Substance: RANITIDINE
     Dates: start: 20221229, end: 20230114
  28. SODIUM BICARBONATE [Concomitant]
     Active Substance: SODIUM BICARBONATE
     Dates: start: 20221229, end: 20230201
  29. WARFARIN SODIUM [Concomitant]
     Active Substance: WARFARIN SODIUM
     Dates: start: 20211129
  30. AZITHROMYCIN [Concomitant]
     Active Substance: AZITHROMYCIN
     Dates: start: 20230210, end: 20230219
  31. MAGNESIUM ISOGLYCYRRHIZINATE [Concomitant]
     Active Substance: MAGNESIUM ISOGLYCYRRHIZINATE
     Dates: start: 20230217, end: 20230228
  32. CHLORPHENIRAMINE MALEATE [Concomitant]
     Active Substance: CHLORPHENIRAMINE MALEATE
     Dates: start: 20230109, end: 20230303
  33. ASPIRIN LYSINE [Concomitant]
     Active Substance: ASPIRIN LYSINE
  34. ESOMEPRAZOLE SODIUM [Concomitant]
     Active Substance: ESOMEPRAZOLE SODIUM
     Dates: start: 20230208, end: 20230209
  35. TRAMADOL HYDROCHLORIDE [Concomitant]
     Active Substance: TRAMADOL HYDROCHLORIDE
     Dates: start: 20230225, end: 20230225
  36. CEFTRIAXONE SODIUM [Concomitant]
     Active Substance: CEFTRIAXONE SODIUM
     Dates: start: 20230209, end: 20230209
  37. NIRMATRELVIR\RITONAVIR [Concomitant]
     Active Substance: NIRMATRELVIR\RITONAVIR
     Dates: start: 20230316, end: 20230324
  38. SULFAMETHOXAZOLE [Concomitant]
     Active Substance: SULFAMETHOXAZOLE
     Dates: start: 20230210, end: 20230217
  39. CALCIUM CHLORIDE\POTASSIUM CHLORIDE\SODIUM CHLORIDE [Concomitant]
     Active Substance: CALCIUM CHLORIDE\POTASSIUM CHLORIDE\SODIUM CHLORIDE
     Dates: start: 20230210, end: 20230213
  40. FLUDEOXYGLUCOSE F-18 [Concomitant]
     Active Substance: FLUDEOXYGLUCOSE F-18
  41. TRAMADOL [Concomitant]
     Active Substance: TRAMADOL
     Dates: start: 20230107, end: 20230107

REACTIONS (3)
  - Anaemia [Not Recovered/Not Resolved]
  - COVID-19 [Unknown]
  - Neutrophil count decreased [Not Recovered/Not Resolved]

NARRATIVE: CASE EVENT DATE: 20230127
